FAERS Safety Report 21868118 (Version 2)
Quarter: 2023Q1

REPORT INFORMATION
  Report Type: Report from Study
  Country: US (occurrence: US)
  Receive Date: 20230116
  Receipt Date: 20230325
  Transmission Date: 20230417
  Serious: Yes (Hospitalization, Other)
  Sender: FDA-Public Use
  Company Number: US-ABBVIE-22K-163-4456024-00

PATIENT
  Sex: Male

DRUGS (1)
  1. IMBRUVICA [Suspect]
     Active Substance: IBRUTINIB
     Indication: Chronic lymphocytic leukaemia
     Route: 048

REACTIONS (11)
  - Hospitalisation [Unknown]
  - Sepsis [Unknown]
  - White blood cell count increased [Unknown]
  - Knee deformity [Unknown]
  - Lymph node rupture [Unknown]
  - Dysstasia [Unknown]
  - Dizziness postural [Unknown]
  - Gait disturbance [Unknown]
  - Urinary hesitation [Unknown]
  - Colon cancer [Unknown]
  - Biopsy bone marrow abnormal [Unknown]
